FAERS Safety Report 5674792-8 (Version None)
Quarter: 2008Q1

REPORT INFORMATION
  Report Type: 
  Country: None (occurrence: None)
  Receive Date: 20080319
  Receipt Date: 20080319
  Transmission Date: 20080703
  Serious: Yes (Death, Life-Threatening, Hospitalization)
  Sender: FDA-Public Use
  Company Number: None

PATIENT
  Age: 51 Year
  Sex: Male

DRUGS (6)
  1. WARFARIN SODIUM [Suspect]
     Dosage: DAILY PO
     Route: 048
  2. ARICEPT [Concomitant]
  3. HYDROCHLOROTHIAZIDE [Concomitant]
  4. METOPROLOL TARTRATE [Concomitant]
  5. PERCOCET [Concomitant]
  6. DILANTIN [Concomitant]

REACTIONS (6)
  - CEREBELLAR HAEMORRHAGE [None]
  - CEREBRAL HAEMORRHAGE [None]
  - COAGULOPATHY [None]
  - FALL [None]
  - INTRACRANIAL PRESSURE INCREASED [None]
  - LETHARGY [None]
